FAERS Safety Report 8349572-5 (Version None)
Quarter: 2012Q2

REPORT INFORMATION
  Report Type: 
  Country: None (occurrence: None)
  Receive Date: 20120510
  Receipt Date: 20120508
  Transmission Date: 20120825
  Serious: Yes (Hospitalization, Other)
  Sender: FDA-Public Use
  Company Number: GB-EISAI INC-E2090-02054-SPO-GB

PATIENT
  Age: 25 Year
  Sex: Male

DRUGS (2)
  1. ZONEGRAN [Suspect]
     Indication: EPILEPSY
     Dosage: TITRATED UP TO 125 MG BID
     Route: 048
     Dates: start: 20120101, end: 20120301
  2. ZONEGRAN [Suspect]
     Dosage: TITRATED DOWN
     Route: 048
     Dates: start: 20120301

REACTIONS (4)
  - TREMOR [None]
  - BALANCE DISORDER [None]
  - CHEST PAIN [None]
  - MUSCULOSKELETAL DISCOMFORT [None]
